FAERS Safety Report 9979271 (Version 1)
Quarter: 2014Q1

REPORT INFORMATION
  Report Type: Report from Study
  Country: US (occurrence: US)
  Receive Date: 20140306
  Receipt Date: 20140306
  Transmission Date: 20141002
  Serious: No
  Sender: FDA-Public Use
  Company Number: US-ABBVIE-13P-163-1173688-00

PATIENT
  Age: 28 Year
  Sex: Female

DRUGS (4)
  1. HUMIRA [Suspect]
     Indication: CROHN^S DISEASE
     Dates: start: 20130925
  2. DEPO PROVERA [Concomitant]
     Indication: CONTRACEPTION
     Dosage: 1 VIAL EVERY 3 MONTHS
  3. CUSTOM ALLERGY SHOTS [Concomitant]
     Indication: HYPERSENSITIVITY
  4. PREDNISONE [Concomitant]
     Indication: CROHN^S DISEASE
     Dosage: TAPER PACK

REACTIONS (1)
  - Hypoaesthesia [Not Recovered/Not Resolved]
